FAERS Safety Report 12676362 (Version 3)
Quarter: 2016Q3

REPORT INFORMATION
  Report Type: Spontaneous
  Country: JP (occurrence: JP)
  Receive Date: 20160823
  Receipt Date: 20160923
  Transmission Date: 20161109
  Serious: Yes (Other)
  Sender: FDA-Public Use
  Company Number: JP-APOTEX-2016AP010585

PATIENT
  Age: 46 Year
  Sex: Female

DRUGS (4)
  1. PAXIL [Suspect]
     Active Substance: PAROXETINE HYDROCHLORIDE
     Indication: ANXIETY DISORDER
     Route: 048
  2. DEPAS [Concomitant]
     Active Substance: ETIZOLAM
     Indication: INSOMNIA
     Route: 065
  3. FLUNITRAZEPAM [Concomitant]
     Active Substance: FLUNITRAZEPAM
     Indication: INSOMNIA
     Route: 065
  4. DEPAS [Concomitant]
     Active Substance: ETIZOLAM
     Indication: ANXIETY DISORDER

REACTIONS (8)
  - Mastitis [Recovering/Resolving]
  - Purulent discharge [Recovered/Resolved]
  - Granuloma [Recovering/Resolving]
  - Erythema [Recovered/Resolved]
  - Bloody discharge [Recovered/Resolved]
  - Breast induration [Recovering/Resolving]
  - Fistula [Recovered/Resolved]
  - Breast mass [Recovering/Resolving]

NARRATIVE: CASE EVENT DATE: 201502
